FAERS Safety Report 6487991-2 (Version None)
Quarter: 2009Q4

REPORT INFORMATION
  Report Type: 
  Country: None (occurrence: None)
  Receive Date: 20091210
  Receipt Date: 20091130
  Transmission Date: 20100525
  Serious: Yes (Other)
  Sender: FDA-Public Use
  Company Number: PHHY2009VE52534

PATIENT
  Sex: Female

DRUGS (2)
  1. ACLASTA [Suspect]
     Indication: OSTEOPOROSIS
     Dosage: 5 MG/YEAR
     Route: 042
     Dates: start: 20091126
  2. DIOVAN [Concomitant]
     Dosage: 180 MG, UNK

REACTIONS (5)
  - CHILLS [None]
  - DISCOMFORT [None]
  - HYPERGLYCAEMIA [None]
  - PYREXIA [None]
  - VOMITING [None]
